FAERS Safety Report 11423172 (Version 3)
Quarter: 2015Q3

REPORT INFORMATION
  Report Type: Report from Study
  Country: US (occurrence: US)
  Receive Date: 20150827
  Receipt Date: 20150922
  Transmission Date: 20151125
  Serious: Yes (Hospitalization, Other)
  Sender: FDA-Public Use
  Company Number: US-ALEXION PHARMACEUTICALS INC.-A201500900

PATIENT

DRUGS (1)
  1. SOLIRIS [Suspect]
     Active Substance: ECULIZUMAB
     Indication: PAROXYSMAL NOCTURNAL HAEMOGLOBINURIA
     Dosage: 900 MG, Q2W
     Route: 042
     Dates: start: 2010, end: 20150225

REACTIONS (4)
  - Unevaluable event [Unknown]
  - Unevaluable event [Unknown]
  - Foetal death [Unknown]
  - Exposure during pregnancy [Not Recovered/Not Resolved]

NARRATIVE: CASE EVENT DATE: 20150201
